FAERS Safety Report 24016403 (Version 1)
Quarter: 2024Q2

REPORT INFORMATION
  Report Type: Spontaneous
  Country: US (occurrence: None)
  Receive Date: 20240626
  Receipt Date: 20240626
  Transmission Date: 20240715
  Serious: Yes (Death)
  Sender: FDA-Public Use
  Company Number: None

PATIENT
  Sex: Male

DRUGS (22)
  1. BOSULIF [Suspect]
     Active Substance: BOSUTINIB MONOHYDRATE
     Indication: Chronic myeloid leukaemia
     Dosage: 100 MG DALY ORAL ?
     Route: 048
     Dates: start: 20231228, end: 20240505
  2. ARIPIPRAZOLE [Concomitant]
  3. ATORVASTATIN [Concomitant]
  4. BACITRACIN [Concomitant]
  5. BRIMONIDINE [Concomitant]
  6. DILTIAZEM ER [Concomitant]
  7. DIVALPROEX [Concomitant]
  8. DORZOLAMIDE [Concomitant]
  9. HYDROXYZINE [Concomitant]
  10. LATANOPROST [Concomitant]
  11. LISINOPRIL [Concomitant]
  12. MEMANTINE [Concomitant]
  13. METFORMIN ER [Concomitant]
  14. MIRTAZAPINE [Concomitant]
  15. PILOCARPINE [Concomitant]
  16. PILOCARPINE [Concomitant]
  17. REXULTI [Concomitant]
  18. REXULTI [Concomitant]
  19. RISPERIDONE [Concomitant]
  20. ROCKLATAN OPTHALAMIC SOLUTION [Concomitant]
  21. SENNA [Concomitant]
  22. TAMSULOSIN [Concomitant]

REACTIONS (1)
  - Death [None]
